FAERS Safety Report 13414378 (Version 1)
Quarter: 2017Q2

REPORT INFORMATION
  Report Type: Spontaneous
  Country: JP (occurrence: JP)
  Receive Date: 20170406
  Receipt Date: 20170406
  Transmission Date: 20170830
  Serious: Yes (Death)
  Sender: FDA-Public Use
  Company Number: JP-JNJFOC-20170404465

PATIENT
  Age: 65 Year
  Sex: Female
  Weight: 78 kg

DRUGS (14)
  1. CANAGLIFLOZIN [Suspect]
     Active Substance: CANAGLIFLOZIN
     Indication: TYPE 2 DIABETES MELLITUS
     Route: 048
     Dates: start: 20160606, end: 20161225
  2. NEORAL [Concomitant]
     Active Substance: CYCLOSPORINE
     Dosage: BEFORE ADMINISTRATION OF CANAGLIFLOZIN.
     Route: 048
     Dates: end: 20161214
  3. PREDONINE [Concomitant]
     Active Substance: PREDNISOLONE
     Dosage: BEFORE ADMINISTRATION OF CANAGLIFLOZIN.
     Route: 048
     Dates: end: 20161218
  4. LASIX [Concomitant]
     Active Substance: FUROSEMIDE
     Dosage: BEFORE ADMINISTRATION OF CANAGLIFLOZIN.
     Route: 048
     Dates: end: 20161218
  5. ALLEGRA [Concomitant]
     Active Substance: FEXOFENADINE HYDROCHLORIDE
     Dosage: BEFORE ADMINISTRATION OF CANAGLIFLOZIN.
     Route: 048
     Dates: end: 20161214
  6. METGLUCO [Concomitant]
     Active Substance: METFORMIN HYDROCHLORIDE
     Indication: TYPE 2 DIABETES MELLITUS
     Dosage: BEFORE ADMINISTRATION OF CANAGLIFLOZIN.
     Route: 048
     Dates: end: 20161225
  7. GENTACIN [Concomitant]
     Active Substance: GENTAMICIN SULFATE
     Dosage: BEFORE ADMINISTRATION OF CANAGLIFLOZIN.
     Route: 062
     Dates: end: 20161218
  8. SEIBULE [Concomitant]
     Active Substance: MIGLITOL
     Indication: TYPE 2 DIABETES MELLITUS
     Dosage: BEFORE ADMINISTRATION OF CANAGLIFLOZIN.
     Route: 048
     Dates: end: 20161225
  9. BONALON [Concomitant]
     Active Substance: ALENDRONATE SODIUM
     Dosage: BEFORE ADMINISTRATION OF CANAGLIFLOZIN.
     Route: 048
     Dates: start: 20161218
  10. AZILVA [Concomitant]
     Active Substance: AZILSARTAN KAMEDOXOMIL
     Dosage: BEFORE ADMINISTRATION OF CANAGLIFLOZIN.
     Route: 048
     Dates: end: 20161218
  11. EQUA [Concomitant]
     Active Substance: VILDAGLIPTIN
     Indication: TYPE 2 DIABETES MELLITUS
     Dosage: BEFORE ADMINISTRATION OF CANAGLIFLOZIN.
     Route: 048
     Dates: end: 20161225
  12. SHAKUYAKUKANZOTO [Concomitant]
     Active Substance: HERBALS
     Dosage: BEFORE ADMINISTRATION OF CANAGLIFLOZIN.
     Route: 048
  13. LANSOPRAZOLE. [Concomitant]
     Active Substance: LANSOPRAZOLE
     Dosage: BEFORE ADMINISTRATION OF CANAGLIFLOZIN.
     Route: 048
     Dates: end: 20161214
  14. MAGMITT [Concomitant]
     Active Substance: MAGNESIUM OXIDE
     Dosage: BEFORE ADMINISTRATION OF CANAGLIFLOZIN.
     Route: 048
     Dates: end: 20161026

REACTIONS (1)
  - Gallbladder cancer [Fatal]
